FAERS Safety Report 7987940-1 (Version None)
Quarter: 2011Q4

REPORT INFORMATION
  Report Type: 
  Country: None (occurrence: None)
  Receive Date: 20111216
  Receipt Date: 20101122
  Transmission Date: 20120403
  Serious: No
  Sender: FDA-Public Use
  Company Number: US-BRISTOL-MYERS SQUIBB COMPANY-15398134

PATIENT
  Age: 9 Year
  Sex: Male

DRUGS (2)
  1. VYVANSE [Concomitant]
  2. ABILIFY [Suspect]
     Indication: BIPOLAR DISORDER

REACTIONS (3)
  - BLOOD UREA NITROGEN/CREATININE RATIO [None]
  - FLAT AFFECT [None]
  - BLOOD CHOLESTEROL INCREASED [None]
